FAERS Safety Report 24922682 (Version 2)
Quarter: 2025Q3

REPORT INFORMATION
  Report Type: Spontaneous
  Country: EU (occurrence: EU)
  Receive Date: 20250204
  Receipt Date: 20250725
  Transmission Date: 20251021
  Serious: Yes (Other)
  Sender: LEO PHARM
  Company Number: None

PATIENT
  Age: 63 Year
  Sex: Female

DRUGS (6)
  1. TACROLIMUS [Suspect]
     Active Substance: TACROLIMUS
     Indication: Dermatomyositis
  2. MYCOPHENOLATE MOFETIL [Suspect]
     Active Substance: MYCOPHENOLATE MOFETIL
     Indication: Immunosuppressant drug therapy
  3. RITUXIMAB [Suspect]
     Active Substance: RITUXIMAB
     Indication: Immunosuppressant drug therapy
     Dosage: ADMINISTERED TWICE 15 DAYS APART
  4. METHYLPREDNISOLONE [Suspect]
     Active Substance: METHYLPREDNISOLONE
     Indication: Immunosuppressant drug therapy
  5. DEFLAZACORT [Suspect]
     Active Substance: DEFLAZACORT
     Indication: Immunosuppressant drug therapy
  6. DEFLAZACORT [Suspect]
     Active Substance: DEFLAZACORT
     Indication: Immunosuppressant drug therapy

REACTIONS (3)
  - Product use in unapproved indication [Unknown]
  - Influenza [Unknown]
  - Fungal infection [Unknown]
